FAERS Safety Report 4609773-6 (Version None)
Quarter: 2005Q1

REPORT INFORMATION
  Report Type: 
  Country: None (occurrence: None)
  Receive Date: 20050314
  Receipt Date: 20050314
  Transmission Date: 20050727
  Serious: Yes (Life-Threatening, Other)
  Sender: FDA-Public Use
  Company Number: None

PATIENT
  Age: 32 Year
  Sex: Female
  Weight: 64.4108 kg

DRUGS (3)
  1. PAXIL [Suspect]
     Indication: DEPRESSION
     Dosage: 20 MG /DAY
  2. ORTHO-NOVUM [Concomitant]
  3. ZYRTEC [Concomitant]

REACTIONS (5)
  - DEPRESSION [None]
  - DRUG WITHDRAWAL SYNDROME [None]
  - PALPITATIONS [None]
  - RESPIRATORY DISORDER [None]
  - TACHYCARDIA [None]
